FAERS Safety Report 18385612 (Version 2)
Quarter: 2020Q4

REPORT INFORMATION
  Report Type: Spontaneous
  Country: US (occurrence: US)
  Receive Date: 20201015
  Receipt Date: 20201125
  Transmission Date: 20210114
  Serious: No
  Sender: FDA-Public Use
  Company Number: US-SHILPA MEDICARE LIMITED-SML-US-2020-00328

PATIENT
  Age: 4 Year
  Sex: Female

DRUGS (1)
  1. IMATINIB TABLETS 100 MG [Suspect]
     Active Substance: IMATINIB
     Indication: CHEMOTHERAPY

REACTIONS (1)
  - Product odour abnormal [Unknown]

NARRATIVE: CASE EVENT DATE: 20200915
